FAERS Safety Report 6998452-6 (Version None)
Quarter: 2010Q3

REPORT INFORMATION
  Report Type: 
  Country: None (occurrence: None)
  Receive Date: 20100920
  Receipt Date: 20100908
  Transmission Date: 20110219
  Serious: Yes (Other)
  Sender: FDA-Public Use
  Company Number: US-JNJFOC-20100902993

PATIENT
  Sex: Female
  Weight: 60.33 kg

DRUGS (1)
  1. REMICADE [Suspect]
     Indication: RHEUMATOID ARTHRITIS
     Route: 042

REACTIONS (3)
  - BURNING SENSATION [None]
  - PAIN IN EXTREMITY [None]
  - WEIGHT DECREASED [None]
